FAERS Safety Report 15995220 (Version 2)
Quarter: 2019Q3

REPORT INFORMATION
  Report Type: Spontaneous
  Country: US (occurrence: US)
  Receive Date: 20190222
  Receipt Date: 20190807
  Transmission Date: 20191004
  Serious: No
  Sender: FDA-Public Use
  Company Number: US-GLAXOSMITHKLINE-US2019027692

PATIENT
  Sex: Male

DRUGS (2)
  1. TRELEGY ELLIPTA [Suspect]
     Active Substance: FLUTICASONE FUROATE\UMECLIDINIUM BROMIDE\VILANTEROL TRIFENATATE
     Indication: OXYGEN SATURATION ABNORMAL
     Dosage: 1 PUFF(S), 1D
     Route: 055
  2. BREO ELLIPTA [Suspect]
     Active Substance: FLUTICASONE FUROATE\VILANTEROL TRIFENATATE
     Indication: OXYGEN SATURATION ABNORMAL
     Dosage: UNK
     Route: 055

REACTIONS (4)
  - Therapy cessation [Unknown]
  - Foreign body in respiratory tract [Recovered/Resolved]
  - Wrong technique in device usage process [Unknown]
  - Dysphonia [Recovered/Resolved]
